FAERS Safety Report 7736309-3 (Version None)
Quarter: 2011Q3

REPORT INFORMATION
  Report Type: 
  Country: None (occurrence: None)
  Receive Date: 20110817
  Receipt Date: 20100611
  Transmission Date: 20111222
  Serious: No
  Sender: FDA-Public Use
  Company Number: 20097378

PATIENT
  Age: 40 Year
  Sex: Female

DRUGS (1)
  1. LIORESAL [Suspect]
     Indication: MUSCLE SPASTICITY
     Dosage: 199.8 MCG, DAILY, INTRATHECAL

REACTIONS (1)
  - MUSCLE SPASTICITY [None]
